FAERS Safety Report 9164848 (Version 1)
Quarter: 2013Q1

REPORT INFORMATION
  Report Type: Spontaneous
  Country: FR (occurrence: None)
  Receive Date: 20130222
  Receipt Date: 20130222
  Transmission Date: 20140127
  Serious: Yes (Hospitalization)
  Sender: FDA-Public Use
  Company Number: FR-1196653

PATIENT
  Age: 75 Year
  Sex: Female

DRUGS (6)
  1. TOBRADEX [Suspect]
     Route: 047
     Dates: start: 20111209, end: 20111220
  2. DEXAFREE [Suspect]
     Dates: start: 20111220, end: 20111226
  3. LOCAPRED [Suspect]
     Dates: start: 20111220, end: 20111226
  4. ACULAR [Suspect]
     Route: 047
     Dates: start: 20111209, end: 20111220
  5. MYDRIATICUM [Suspect]
     Dosage: TOTAL
     Route: 047
     Dates: start: 20111209, end: 20111209
  6. STERIDOSE [Suspect]
     Route: 047
     Dates: start: 20111209, end: 20111220

REACTIONS (8)
  - Dermatitis contact [None]
  - Eyelid oedema [None]
  - Rash pruritic [None]
  - Rash erythematous [None]
  - Eczema [None]
  - Skin exfoliation [None]
  - Scab [None]
  - Eye movement disorder [None]
